FAERS Safety Report 9986564 (Version 1)
Quarter: 2014Q1

REPORT INFORMATION
  Report Type: Spontaneous
  Country: FR (occurrence: FR)
  Receive Date: 20140307
  Receipt Date: 20140307
  Transmission Date: 20141002
  Serious: Yes (Other)
  Sender: FDA-Public Use
  Company Number: FR-ASTRAZENECA-2014SE15213

PATIENT
  Age: 14480 Day
  Sex: Female

DRUGS (4)
  1. INEXIUM [Suspect]
     Indication: GASTROOESOPHAGEAL REFLUX DISEASE
     Route: 048
     Dates: start: 2013, end: 2013
  2. INEXIUM [Suspect]
     Indication: DYSPHAGIA
     Route: 048
     Dates: start: 2013, end: 2013
  3. INEXIUM [Suspect]
     Indication: GASTROOESOPHAGEAL REFLUX DISEASE
     Route: 048
     Dates: start: 20140226, end: 20140226
  4. INEXIUM [Suspect]
     Indication: DYSPHAGIA
     Route: 048
     Dates: start: 20140226, end: 20140226

REACTIONS (4)
  - Palatal oedema [Not Recovered/Not Resolved]
  - Oral pain [Not Recovered/Not Resolved]
  - Blister [Not Recovered/Not Resolved]
  - Headache [Not Recovered/Not Resolved]
